FAERS Safety Report 6818850-0 (Version None)
Quarter: 2010Q2

REPORT INFORMATION
  Report Type: 
  Country: None (occurrence: None)
  Receive Date: 20100630
  Receipt Date: 20100621
  Transmission Date: 20101027
  Serious: Yes (Other)
  Sender: FDA-Public Use
  Company Number: 2010SP025029

PATIENT
  Age: 34 Year
  Sex: Female
  Weight: 56 kg

DRUGS (11)
  1. NASONEX [Suspect]
     Indication: DRUG USE FOR UNKNOWN INDICATION
     Dosage: BID, NAS
     Route: 045
     Dates: start: 20100320, end: 20100322
  2. THYROXIN [Concomitant]
  3. CLONIDINE [Concomitant]
  4. NIFEDIPINE [Concomitant]
  5. RASILEX [Concomitant]
  6. MAGNESIUM VERLA [Concomitant]
  7. FOLCUR [Concomitant]
  8. NOVALGIN [Concomitant]
  9. DIUVAN [Concomitant]
  10. DREISAVIT [Concomitant]
  11. FOSRENOL [Concomitant]

REACTIONS (11)
  - ALVEOLITIS [None]
  - COUGH [None]
  - DRUG HYPERSENSITIVITY [None]
  - HAEMOPTYSIS [None]
  - HAEMORRHAGE [None]
  - HYPERCAPNIA [None]
  - MUCOSAL HAEMORRHAGE [None]
  - PNEUMONIA [None]
  - PULMONARY FIBROSIS [None]
  - PULMONARY HAEMORRHAGE [None]
  - RESPIRATORY FAILURE [None]
